FAERS Safety Report 7781537-4 (Version None)
Quarter: 2011Q3

REPORT INFORMATION
  Report Type: 
  Country: None (occurrence: None)
  Receive Date: 20110927
  Receipt Date: 20110913
  Transmission Date: 20111222
  Serious: No
  Sender: FDA-Public Use
  Company Number: US-B.I. PHARMACEUTICALS,INC./RIDGEFIELD-2011-BP-14086BP

PATIENT
  Age: 80 Year
  Sex: Female

DRUGS (10)
  1. TRICOR [Concomitant]
     Indication: BLOOD TRIGLYCERIDES INCREASED
  2. TIKOSYN [Concomitant]
     Indication: ATRIAL FIBRILLATION
     Dosage: 500 MCG
     Route: 048
  3. TAPAZOLE [Concomitant]
     Indication: HYPERTHYROIDISM
     Dosage: 10 MG
     Route: 048
     Dates: start: 20090101
  4. OMEPRAZOLE [Concomitant]
     Dosage: 40 MG
     Route: 048
  5. ALDACTONE [Concomitant]
     Dosage: 25 MG
     Route: 048
  6. ZOCOR [Concomitant]
     Indication: BLOOD CHOLESTEROL INCREASED
     Dosage: 40 MG
     Route: 048
     Dates: start: 20080101
  7. TRICOR [Concomitant]
     Indication: BLOOD CHOLESTEROL INCREASED
     Dosage: 145 MG
     Route: 048
     Dates: start: 20060101
  8. DIOVAN [Concomitant]
     Indication: HYPERTENSION
     Dosage: 160 MG
     Route: 048
     Dates: start: 20080101
  9. PRADAXA [Suspect]
     Indication: ATRIAL FIBRILLATION
     Dosage: 300 MG
     Route: 048
     Dates: start: 20110204
  10. COREG [Concomitant]
     Dosage: 12.5 MG
     Route: 048

REACTIONS (3)
  - MUSCULAR WEAKNESS [None]
  - PAIN IN EXTREMITY [None]
  - MUSCLE SPASMS [None]
